FAERS Safety Report 20617627 (Version 1)
Quarter: 2022Q1

REPORT INFORMATION
  Report Type: Spontaneous
  Country: US (occurrence: US)
  Receive Date: 20220321
  Receipt Date: 20220321
  Transmission Date: 20220423
  Serious: No
  Sender: FDA-Public Use
  Company Number: US-Santen Inc-2021-USA-009953

PATIENT
  Age: 70 Year
  Sex: Female
  Weight: 79.450 kg

DRUGS (1)
  1. FLAREX [Suspect]
     Active Substance: FLUOROMETHOLONE ACETATE
     Indication: Dry eye
     Dosage: 3 DROP, 3X/DAY
     Route: 047
     Dates: start: 20210622

REACTIONS (2)
  - Product dispensing issue [Unknown]
  - Eye pain [Unknown]
